FAERS Safety Report 16061613 (Version 1)
Quarter: 2019Q1

REPORT INFORMATION
  Report Type: Spontaneous
  Country: US (occurrence: US)
  Receive Date: 20190312
  Receipt Date: 20190312
  Transmission Date: 20190418
  Serious: No
  Sender: FDA-Public Use
  Company Number: US-PFIZER INC-2019096539

PATIENT
  Age: 68 Year
  Sex: Female

DRUGS (1)
  1. METHOTREXATE SODIUM. [Suspect]
     Active Substance: METHOTREXATE SODIUM
     Dosage: 0.8 ML, WEEKLY (EVERY WEEK)
     Route: 058

REACTIONS (4)
  - Swelling [Unknown]
  - Condition aggravated [Unknown]
  - Incorrect route of product administration [Unknown]
  - Musculoskeletal stiffness [Unknown]
